FAERS Safety Report 8548013-2 (Version None)
Quarter: 2012Q3

REPORT INFORMATION
  Report Type: 
  Country: None (occurrence: None)
  Receive Date: 20120729
  Receipt Date: 20120718
  Transmission Date: 20120928
  Serious: Yes (Hospitalization)
  Sender: FDA-Public Use
  Company Number: JP-BRISTOL-MYERS SQUIBB COMPANY-16677619

PATIENT
  Age: 51 Year
  Sex: Female
  Weight: 54 kg

DRUGS (5)
  1. WARFARIN SODIUM [Concomitant]
     Indication: ANTICOAGULANT THERAPY
     Route: 048
     Dates: start: 20120304
  2. GRANISETRON [Concomitant]
     Indication: PREMEDICATION
     Route: 041
     Dates: start: 20120509, end: 20120509
  3. CHLOR-TRIMETON [Concomitant]
     Indication: PREMEDICATION
     Route: 041
     Dates: start: 20120509, end: 20120509
  4. DEXAMETHASONE SODIUM PHOSPHATE [Concomitant]
     Indication: PREMEDICATION
     Route: 041
     Dates: start: 20120509, end: 20120509
  5. ERBITUX [Suspect]
     Indication: COLORECTAL CANCER
     Dosage: 16NOV2011-29FEB12 AGAIN IN 400MG ON 9MAY12-9MAY12 400MG
     Route: 042
     Dates: start: 20111116, end: 20120509

REACTIONS (1)
  - INFUSION RELATED REACTION [None]
